FAERS Safety Report 4403821-4 (Version None)
Quarter: 2004Q3

REPORT INFORMATION
  Report Type: 
  Country: None (occurrence: None)
  Receive Date: 20040719
  Receipt Date: 20040707
  Transmission Date: 20050211
  Serious: Yes (Hospitalization)
  Sender: FDA-Public Use
  Company Number: 04P-028-0260036-00

PATIENT
  Age: 35 Year
  Sex: Female
  Weight: 80 kg

DRUGS (1)
  1. MERIDIA [Suspect]
     Dosage: 10 MG, 1 IN 1D, PER ORA
     Route: 048
     Dates: start: 20040419, end: 20040426

REACTIONS (8)
  - ABDOMINAL PAIN [None]
  - BACK PAIN [None]
  - HOT FLUSH [None]
  - HYPOAESTHESIA [None]
  - MONOPLEGIA [None]
  - NAUSEA [None]
  - PULMONARY EMBOLISM [None]
  - TACHYCARDIA [None]
